FAERS Safety Report 18239868 (Version 1)
Quarter: 2020Q3

REPORT INFORMATION
  Report Type: Other
  Country: IT (occurrence: IT)
  Receive Date: 20200908
  Receipt Date: 20200908
  Transmission Date: 20201103
  Serious: Yes (Other)
  Sender: FDA-Public Use
  Company Number: IT-ROCHE-2667330

PATIENT
  Age: 48 Year
  Sex: Female

DRUGS (4)
  1. HERCEPTIN [Suspect]
     Active Substance: TRASTUZUMAB
     Indication: HER2 POSITIVE BREAST CANCER
     Route: 065
  2. ATEZOLIZUMAB. [Suspect]
     Active Substance: ATEZOLIZUMAB
     Indication: HER2 POSITIVE BREAST CANCER
     Route: 042
  3. PERJETA [Suspect]
     Active Substance: PERTUZUMAB
     Indication: HER2 POSITIVE BREAST CANCER
     Route: 065
  4. DOCETAXEL. [Concomitant]
     Active Substance: DOCETAXEL
     Indication: HER2 POSITIVE BREAST CANCER

REACTIONS (18)
  - Alopecia [Unknown]
  - Malaise [Unknown]
  - Madarosis [Unknown]
  - Depression [Unknown]
  - Agitation [Unknown]
  - Lung disorder [Unknown]
  - Vomiting [Unknown]
  - Feeling drunk [Unknown]
  - Nausea [Unknown]
  - Dysgeusia [Unknown]
  - Panic attack [Unknown]
  - Thyroid disorder [Unknown]
  - Gait disturbance [Unknown]
  - Malaise [Unknown]
  - Sensory loss [Unknown]
  - Somnolence [Unknown]
  - Anxiety [Unknown]
  - Fatigue [Unknown]

NARRATIVE: CASE EVENT DATE: 201905
